FAERS Safety Report 6022836-6 (Version None)
Quarter: 2008Q4

REPORT INFORMATION
  Report Type: 
  Country: None (occurrence: None)
  Receive Date: 20081230
  Receipt Date: 20080212
  Transmission Date: 20090506
  Serious: No
  Sender: FDA-Public Use
  Company Number: US-ABBOTT-08P-163-0438036-00

PATIENT
  Sex: Female
  Weight: 7.264 kg

DRUGS (3)
  1. OMNICEF [Suspect]
     Indication: EAR INFECTION
     Route: 048
     Dates: start: 20071201, end: 20071201
  2. OMNICEF [Suspect]
     Route: 048
     Dates: start: 20080208
  3. AUGMENTIN [Concomitant]
     Indication: EAR INFECTION
     Route: 048
     Dates: start: 20080101, end: 20080101

REACTIONS (1)
  - FAECES DISCOLOURED [None]
